FAERS Safety Report 5774797-2 (Version None)
Quarter: 2008Q2

REPORT INFORMATION
  Report Type: 
  Country: None (occurrence: None)
  Receive Date: 20080616
  Receipt Date: 20080616
  Transmission Date: 20081010
  Serious: Yes (Other)
  Sender: FDA-Public Use
  Company Number: None

PATIENT
  Age: 76 Year
  Sex: Female
  Weight: 104.3273 kg

DRUGS (2)
  1. CIPROFLOXACIN [Suspect]
     Indication: CYSTITIS
     Dosage: 1 TABLET 2X DAY MOUTH
     Route: 048
     Dates: start: 20080523, end: 20080528
  2. CIPROFLOXACIN [Suspect]
     Indication: KIDNEY INFECTION
     Dosage: 1 TABLET 2X DAY MOUTH
     Route: 048
     Dates: start: 20080523, end: 20080528

REACTIONS (3)
  - DIZZINESS [None]
  - PAIN [None]
  - RASH [None]
